FAERS Safety Report 20233766 (Version 1)
Quarter: 2021Q4

REPORT INFORMATION
  Report Type: Report from Study
  Country: GB (occurrence: GB)
  Receive Date: 20211227
  Receipt Date: 20211227
  Transmission Date: 20220303
  Serious: Yes (Other)
  Sender: FDA-Public Use
  Company Number: GB-TEVA-2021-GB-1994213

PATIENT
  Age: 86 Year
  Sex: Male

DRUGS (1)
  1. OCTREOTIDE [Suspect]
     Active Substance: OCTREOTIDE

REACTIONS (8)
  - Myocardial infarction [Unknown]
  - Fatigue [Unknown]
  - Dyspnoea [Unknown]
  - Dizziness postural [Unknown]
  - Myalgia [Unknown]
  - Mucosal discolouration [Unknown]
  - Full blood count abnormal [Unknown]
  - Anaemia [Unknown]

NARRATIVE: CASE EVENT DATE: 20210101
